FAERS Safety Report 18546580 (Version 2)
Quarter: 2020Q4

REPORT INFORMATION
  Report Type: Spontaneous
  Country: PT (occurrence: PT)
  Receive Date: 20201125
  Receipt Date: 20201221
  Transmission Date: 20210114
  Serious: Yes (Death)
  Sender: FDA-Public Use
  Company Number: PT-GILEAD-2020-0505920

PATIENT
  Age: 81 Year
  Sex: Female
  Weight: 80 kg

DRUGS (19)
  1. QUETIAPINE. [Concomitant]
     Active Substance: QUETIAPINE
  2. MEROPENEM. [Concomitant]
     Active Substance: MEROPENEM
  3. VEKLURY [Suspect]
     Active Substance: REMDESIVIR
     Indication: COVID-19 PNEUMONIA
     Dosage: 200MG ON D1 FOLLOWING BY 100MG (D2-D5).
     Route: 042
     Dates: start: 20201103, end: 20201106
  4. VANCOMYCIN [Concomitant]
     Active Substance: VANCOMYCIN
  5. AMIODARONE [Concomitant]
     Active Substance: AMIODARONE
     Route: 048
  6. FUROSEMIDE. [Concomitant]
     Active Substance: FUROSEMIDE
     Route: 048
  7. NOREPINEPHRINE. [Concomitant]
     Active Substance: NOREPINEPHRINE
  8. CAPTOPRIL. [Concomitant]
     Active Substance: CAPTOPRIL
     Route: 048
  9. SALBUTAMOL [Concomitant]
     Active Substance: ALBUTEROL
  10. POTASSIUM CHLORIDE. [Concomitant]
     Active Substance: POTASSIUM CHLORIDE
  11. PROPOFOL. [Concomitant]
     Active Substance: PROPOFOL
  12. ESOMEPRAZOLE. [Concomitant]
     Active Substance: ESOMEPRAZOLE MAGNESIUM
  13. HYDROCORTISONE. [Concomitant]
     Active Substance: HYDROCORTISONE
  14. TRAMADOL. [Concomitant]
     Active Substance: TRAMADOL
  15. IPRATROPIUM BROMIDE. [Concomitant]
     Active Substance: IPRATROPIUM BROMIDE
  16. ENOXAPARIN SODIUM. [Concomitant]
     Active Substance: ENOXAPARIN SODIUM
     Route: 058
  17. BISACODYL. [Concomitant]
     Active Substance: BISACODYL
  18. BISOPROLOL [Concomitant]
     Active Substance: BISOPROLOL
     Route: 048
  19. SPIRONOLACTONE. [Concomitant]
     Active Substance: SPIRONOLACTONE
     Route: 048

REACTIONS (1)
  - Transaminases increased [Fatal]

NARRATIVE: CASE EVENT DATE: 20201104
